FAERS Safety Report 25770064 (Version 2)
Quarter: 2025Q4

REPORT INFORMATION
  Report Type: Spontaneous
  Country: EU (occurrence: EU)
  Receive Date: 20250907
  Receipt Date: 20251024
  Transmission Date: 20260118
  Serious: Yes (Death, Hospitalization, Other)
  Sender: SERVIER
  Company Number: EU-SERVIER-S25012814

PATIENT

DRUGS (3)
  1. TIBSOVO [Suspect]
     Active Substance: IVOSIDENIB
     Indication: Acute myeloid leukaemia
     Dosage: 500 MG, QD
     Route: 048
     Dates: start: 202507, end: 202507
  2. TIBSOVO [Suspect]
     Active Substance: IVOSIDENIB
     Dosage: 250 MG, QD
     Route: 048
     Dates: start: 202508, end: 202508
  3. VIDAZA [Concomitant]
     Active Substance: AZACITIDINE
     Indication: Acute myeloid leukaemia
     Dosage: 143 MG, UNKNOWN
     Route: 065
     Dates: start: 202507

REACTIONS (7)
  - Malignant neoplasm progression [Fatal]
  - Differentiation syndrome [Recovered/Resolved]
  - Sepsis [Recovered/Resolved]
  - Sepsis [Unknown]
  - Cytopenia [Unknown]
  - Drug ineffective [Recovered/Resolved]
  - Fistula [Unknown]

NARRATIVE: CASE EVENT DATE: 20250701
